FAERS Safety Report 19947811 (Version 1)
Quarter: 2021Q4

REPORT INFORMATION
  Report Type: Report from Study
  Country: None (occurrence: CO)
  Receive Date: 20211013
  Receipt Date: 20211013
  Transmission Date: 20220303
  Serious: Yes (Hospitalization, Other)
  Sender: FDA-Public Use
  Company Number: CO-ASTRAZENECA-2021A762329

PATIENT
  Age: 2 Month
  Sex: Male
  Weight: 3.2 kg

DRUGS (1)
  1. SYNAGIS [Suspect]
     Active Substance: PALIVIZUMAB
     Indication: Antiviral prophylaxis
     Route: 030
     Dates: start: 20210904

REACTIONS (4)
  - Apnoea [Recovering/Resolving]
  - Haemoglobin decreased [Recovering/Resolving]
  - Drowning [Recovering/Resolving]
  - Dyspnoea [Recovering/Resolving]

NARRATIVE: CASE EVENT DATE: 20211002
